FAERS Safety Report 21796356 (Version 2)
Quarter: 2023Q1

REPORT INFORMATION
  Report Type: Spontaneous
  Country: JP (occurrence: JP)
  Receive Date: 20221229
  Receipt Date: 20230124
  Transmission Date: 20230418
  Serious: Yes (Other)
  Sender: FDA-Public Use
  Company Number: JP-ALLERGAN-2236972US

PATIENT
  Sex: Male

DRUGS (9)
  1. ALPHAGAN P [Suspect]
     Active Substance: BRIMONIDINE TARTRATE
     Indication: Glaucoma
     Dosage: 2 DROP/DAY
     Route: 047
     Dates: end: 20181218
  2. ALPHAGAN P [Suspect]
     Active Substance: BRIMONIDINE TARTRATE
     Dosage: UNK
  3. CEFMENOXIME HYDROCHLORIDE [Concomitant]
     Active Substance: CEFMENOXIME HYDROCHLORIDE
     Indication: Infection prophylaxis
     Dosage: 4 DROP/DAY
     Route: 047
     Dates: start: 20190118, end: 20190315
  4. PIRENOXINE [Concomitant]
     Active Substance: PIRENOXINE
     Indication: Cataract
     Dosage: 1 GTT
     Route: 047
  5. CYANOCOBALAMIN [Concomitant]
     Active Substance: CYANOCOBALAMIN
     Indication: Asthenopia
     Dosage: 1 GTT
     Route: 047
  6. BETAMETHASONE SODIUM PHOSPHATE [Concomitant]
     Active Substance: BETAMETHASONE SODIUM PHOSPHATE
     Indication: Antiinflammatory therapy
     Dosage: 4 DROP/DAY
     Route: 047
     Dates: start: 20181209, end: 20190117
  7. LEVOFLOXACIN [Concomitant]
     Active Substance: LEVOFLOXACIN
     Indication: Infection prophylaxis
     Dosage: 4 DROP/DAY
     Route: 047
     Dates: start: 20181209, end: 20190117
  8. VALTREX [Concomitant]
     Active Substance: VALACYCLOVIR HYDROCHLORIDE
     Indication: Diagnostic procedure
     Dosage: 6 DOSAGE FORM/DAY
     Route: 048
  9. LATANOPROST [Concomitant]
     Active Substance: LATANOPROST
     Indication: Ocular hypertension
     Dosage: 1 DROP/DAY
     Route: 047

REACTIONS (2)
  - Corneal opacity [Recovered/Resolved with Sequelae]
  - Blepharitis [Unknown]

NARRATIVE: CASE EVENT DATE: 20181206
